FAERS Safety Report 23630419 (Version 1)
Quarter: 2024Q1

REPORT INFORMATION
  Report Type: Spontaneous
  Country: US (occurrence: US)
  Receive Date: 20240314
  Receipt Date: 20240314
  Transmission Date: 20240410
  Serious: No
  Sender: FDA-Public Use
  Company Number: US-ALVOGEN-2023091310

PATIENT
  Sex: Female

DRUGS (4)
  1. BUPRENORPHINE HYDROCHLORIDE AND NALOXONE HYDROCHLORIDE [Suspect]
     Active Substance: BUPRENORPHINE HYDROCHLORIDE\NALOXONE HYDROCHLORIDE
     Indication: Product used for unknown indication
  2. VITAMIN B12 [Concomitant]
     Active Substance: CYANOCOBALAMIN
     Indication: Product used for unknown indication
  3. VITAMIN E [Concomitant]
     Active Substance: .ALPHA.-TOCOPHEROL
     Indication: Product used for unknown indication
  4. MANGANESE [Concomitant]
     Active Substance: MANGANESE CHLORIDE
     Indication: Product used for unknown indication

REACTIONS (2)
  - Vaginal mucosal blistering [Unknown]
  - Exposure via partner [Unknown]

NARRATIVE: CASE EVENT DATE: 20230412
